FAERS Safety Report 10259666 (Version 2)
Quarter: 2014Q3

REPORT INFORMATION
  Report Type: Spontaneous
  Country: CN (occurrence: CN)
  Receive Date: 20140625
  Receipt Date: 20140729
  Transmission Date: 20150326
  Serious: Yes (Other)
  Sender: FDA-Public Use
  Company Number: CN-GILEAD-2014-0106416

PATIENT
  Age: 35 Year
  Sex: Female

DRUGS (2)
  1. ENTECAVIR [Concomitant]
     Active Substance: ENTECAVIR
     Indication: CHRONIC HEPATITIS
     Dosage: 1 DF, QD
     Route: 065
  2. VIREAD [Suspect]
     Active Substance: TENOFOVIR DISOPROXIL FUMARATE
     Indication: CHRONIC HEPATITIS
     Dosage: 1 DF, QD
     Route: 048
     Dates: start: 2014

REACTIONS (5)
  - Osteoporosis [Unknown]
  - Pain in extremity [Unknown]
  - Condition aggravated [Unknown]
  - Arthralgia [Unknown]
  - Exostosis [Unknown]
